FAERS Safety Report 8614595-5 (Version None)
Quarter: 2012Q3

REPORT INFORMATION
  Report Type: 
  Country: None (occurrence: None)
  Receive Date: 20120823
  Receipt Date: 20120815
  Transmission Date: 20120928
  Serious: Yes (Other)
  Sender: FDA-Public Use
  Company Number: PHHY2012IN067593

PATIENT
  Sex: Female
  Weight: 2.35 kg

DRUGS (1)
  1. DICLOFENAC SODIUM [Suspect]
     Route: 064

REACTIONS (5)
  - OLIGURIA [None]
  - FOETAL EXPOSURE DURING PREGNANCY [None]
  - HYPERKALAEMIA [None]
  - METABOLIC ACIDOSIS [None]
  - RENAL FAILURE NEONATAL [None]
